FAERS Safety Report 16730900 (Version 1)
Quarter: 2019Q3

REPORT INFORMATION
  Report Type: Report from Study
  Country: CR (occurrence: CR)
  Receive Date: 20190822
  Receipt Date: 20190822
  Transmission Date: 20191005
  Serious: Yes (Death, Hospitalization)
  Sender: FDA-Public Use
  Company Number: PHHY2017CR078976

PATIENT
  Sex: Male
  Weight: 130 kg

DRUGS (4)
  1. SANDOSTATIN LAR DEPOT [Suspect]
     Active Substance: OCTREOTIDE ACETATE
     Dosage: 30 MG, UNK
     Route: 030
  2. ZOMETA [Suspect]
     Active Substance: ZOLEDRONIC ACID
     Indication: PRODUCT USED FOR UNKNOWN INDICATION
     Dosage: UNK
     Route: 065
  3. SANDOSTATIN LAR DEPOT [Suspect]
     Active Substance: OCTREOTIDE ACETATE
     Indication: NEUROENDOCRINE TUMOUR
     Dosage: 20 MG, QMO
     Route: 030
     Dates: start: 201610
  4. SANDOSTATIN LAR DEPOT [Suspect]
     Active Substance: OCTREOTIDE ACETATE
     Dosage: 25 MG, UNK
     Route: 030

REACTIONS (33)
  - Feeding disorder [Not Recovered/Not Resolved]
  - Malaise [Unknown]
  - Muscle disorder [Unknown]
  - Feeling cold [Unknown]
  - Myalgia [Not Recovered/Not Resolved]
  - Asthenia [Unknown]
  - Drug ineffective [Unknown]
  - Pain [Not Recovered/Not Resolved]
  - Dysgeusia [Unknown]
  - Sluggishness [Unknown]
  - Dyspepsia [Unknown]
  - Dysphagia [Unknown]
  - Chest pain [Not Recovered/Not Resolved]
  - Musculoskeletal pain [Unknown]
  - Pain in extremity [Unknown]
  - Nausea [Unknown]
  - Bone pain [Unknown]
  - Nervousness [Unknown]
  - Death [Fatal]
  - Skin lesion [Unknown]
  - Weight decreased [Unknown]
  - Anxiety [Unknown]
  - Somnolence [Unknown]
  - Eating disorder [Unknown]
  - Abdominal discomfort [Unknown]
  - Bronchitis [Unknown]
  - Fall [Unknown]
  - Hyperhidrosis [Unknown]
  - Muscle contracture [Unknown]
  - Calcification of muscle [Unknown]
  - Depressed mood [Unknown]
  - Back pain [Not Recovered/Not Resolved]
  - Fat tissue decreased [Unknown]
